FAERS Safety Report 13627651 (Version 1)
Quarter: 2017Q2

REPORT INFORMATION
  Report Type: Spontaneous
  Country: US (occurrence: US)
  Receive Date: 20170531
  Receipt Date: 20170531
  Transmission Date: 20170830
  Serious: Yes (Other)
  Sender: FDA-Public Use
  Company Number: US-ASTELLAS-1545703

PATIENT
  Sex: Male

DRUGS (3)
  1. TYLENOL [Concomitant]
     Active Substance: ACETAMINOPHEN
  2. ENOXAPARIN [Concomitant]
     Active Substance: ENOXAPARIN
  3. TARCEVA [Suspect]
     Active Substance: ERLOTINIB HYDROCHLORIDE
     Indication: LUNG NEOPLASM MALIGNANT
     Route: 048
     Dates: start: 20150104

REACTIONS (10)
  - Headache [Unknown]
  - Contusion [Unknown]
  - Dysarthria [Unknown]
  - Nausea [Unknown]
  - Vomiting [Unknown]
  - Metastases to meninges [Unknown]
  - Diarrhoea [Unknown]
  - Confusional state [Unknown]
  - Retching [Unknown]
  - Balance disorder [Unknown]
